FAERS Safety Report 7874680-2 (Version None)
Quarter: 2011Q4

REPORT INFORMATION
  Report Type: 
  Country: None (occurrence: None)
  Receive Date: 20111031
  Receipt Date: 20111025
  Transmission Date: 20120403
  Serious: No
  Sender: FDA-Public Use
  Company Number: US-PFIZER INC-2011229165

PATIENT
  Sex: Female
  Weight: 70.295 kg

DRUGS (4)
  1. ADVIL PM [Suspect]
     Indication: INSOMNIA
  2. ADVIL PM [Suspect]
     Indication: SLEEP DISORDER
  3. IBUPROFEN (ADVIL) [Concomitant]
     Dosage: UNK
  4. ADVIL PM [Suspect]
     Indication: ARTHRALGIA
     Dosage: UNK
     Dates: start: 20101101, end: 20110925

REACTIONS (1)
  - DRUG INEFFECTIVE [None]
